FAERS Safety Report 15663154 (Version 1)
Quarter: 2018Q4

REPORT INFORMATION
  Report Type: Spontaneous
  Country: IT (occurrence: IT)
  Receive Date: 20181128
  Receipt Date: 20181128
  Transmission Date: 20190205
  Serious: Yes (Hospitalization, Other)
  Sender: FDA-Public Use
  Company Number: IT-AUROBINDO-AUR-APL-2018-056508

PATIENT
  Age: 1 Year
  Sex: Male
  Weight: 11 kg

DRUGS (3)
  1. TOPIRAMATE. [Suspect]
     Active Substance: TOPIRAMATE
     Indication: INFANTILE SPASMS
     Dosage: 20 MILLIGRAM, ONCE A DAY
     Route: 048
  2. NITRAZEPAM [Concomitant]
     Active Substance: NITRAZEPAM
     Indication: PRODUCT USED FOR UNKNOWN INDICATION
     Dosage: 2.5 MILLIGRAM, ONCE A DAY
     Route: 048
  3. VIGABATRIN. [Concomitant]
     Active Substance: VIGABATRIN
     Indication: INFANTILE SPASMS
     Dosage: 1200 MILLIGRAM, ONCE A DAY
     Route: 048

REACTIONS (4)
  - Psychomotor retardation [Recovering/Resolving]
  - Neutropenia [Recovering/Resolving]
  - Relapsing fever [Recovering/Resolving]
  - Infantile spasms [Recovering/Resolving]

NARRATIVE: CASE EVENT DATE: 20180917
